FAERS Safety Report 18107081 (Version 1)
Quarter: 2020Q3

REPORT INFORMATION
  Report Type: Spontaneous
  Country: US (occurrence: US)
  Receive Date: 20200804
  Receipt Date: 20200804
  Transmission Date: 20201103
  Serious: Yes (Other)
  Sender: FDA-Public Use
  Company Number: US-GILEAD-2020-0488546

PATIENT

DRUGS (1)
  1. ATRIPLA [Suspect]
     Active Substance: EFAVIRENZ\EMTRICITABINE\TENOFOVIR DISOPROXIL FUMARATE
     Indication: ACQUIRED IMMUNODEFICIENCY SYNDROME
     Dosage: UNK
     Route: 048
     Dates: start: 200504, end: 201803

REACTIONS (10)
  - Eating disorder [Unknown]
  - Bone density decreased [Unknown]
  - Tooth loss [Unknown]
  - Vitamin D deficiency [Unknown]
  - Chronic kidney disease [Unknown]
  - Osteonecrosis [Unknown]
  - Osteomalacia [Unknown]
  - Bone loss [Unknown]
  - Acute kidney injury [Unknown]
  - Fracture [Unknown]
